FAERS Safety Report 6802870-6 (Version None)
Quarter: 2010Q2

REPORT INFORMATION
  Report Type: 
  Country: None (occurrence: None)
  Receive Date: 20100628
  Receipt Date: 20100618
  Transmission Date: 20101027
  Serious: Yes (Hospitalization)
  Sender: FDA-Public Use
  Company Number: HQWYE074129JAN03

PATIENT
  Sex: Female

DRUGS (2)
  1. PREMPRO [Suspect]
     Dosage: UNKNOWN
     Dates: start: 19980701, end: 20010101
  2. ESTRACE [Suspect]

REACTIONS (1)
  - CARDIOVASCULAR DISORDER [None]
